FAERS Safety Report 9387425 (Version 1)
Quarter: 2013Q3

REPORT INFORMATION
  Report Type: Spontaneous
  Country: US (occurrence: None)
  Receive Date: 20130703
  Receipt Date: 20130703
  Transmission Date: 20140515
  Serious: Yes (Other)
  Sender: FDA-Public Use
  Company Number: None

PATIENT
  Age: 47 Year
  Sex: Male
  Weight: 90.72 kg

DRUGS (1)
  1. UNITHROID [Suspect]
     Indication: HYPOTHYROIDISM
     Dates: start: 201203, end: 201206

REACTIONS (1)
  - Pharyngeal oedema [None]
